FAERS Safety Report 8102523-0 (Version None)
Quarter: 2012Q1

REPORT INFORMATION
  Report Type: 
  Country: None (occurrence: None)
  Receive Date: 20120201
  Receipt Date: 20120120
  Transmission Date: 20120608
  Serious: Yes (Hospitalization)
  Sender: FDA-Public Use
  Company Number: US-BAYER-2011-101027

PATIENT
  Age: 22 Year
  Sex: Female

DRUGS (3)
  1. IRON SULFATETHIAMIN COMPOUND TAB [Concomitant]
  2. YAZ [Suspect]
     Dosage: UNK
     Dates: start: 20080301, end: 20081001
  3. YASMIN [Suspect]
     Dosage: UNK
     Dates: start: 20080301, end: 20081001

REACTIONS (8)
  - EMOTIONAL DISTRESS [None]
  - CEREBROVASCULAR ACCIDENT [None]
  - PSYCHOLOGICAL TRAUMA [None]
  - INJURY [None]
  - PAIN [None]
  - ANXIETY [None]
  - ANHEDONIA [None]
  - FEAR [None]
